FAERS Safety Report 7812715 (Version 5)
Quarter: 2014Q3

REPORT INFORMATION
  Report Type: Spontaneous
  Country: US (occurrence: US)
  Receive Date: 20110215
  Receipt Date: 20140723
  Transmission Date: 20150326
  Serious: Yes (Hospitalization, Other)
  Sender: FDA-Public Use
  Company Number: US-ROCHE-736497

PATIENT
  Age: 47 Year
  Sex: Female
  Weight: 49 kg

DRUGS (2)
  1. ACCUTANE [Suspect]
     Active Substance: ISOTRETINOIN
     Indication: ACNE
     Route: 065
     Dates: start: 1995, end: 1996
  2. ACCUTANE [Suspect]
     Active Substance: ISOTRETINOIN
     Route: 065
     Dates: start: 199701, end: 199801

REACTIONS (15)
  - Depression [Unknown]
  - Herpes zoster [Unknown]
  - Arthritis [Unknown]
  - Gastrointestinal injury [Unknown]
  - Intestinal haemorrhage [Unknown]
  - Gastrointestinal haemorrhage [Unknown]
  - Large intestine polyp [Unknown]
  - Lichen planus [Unknown]
  - Inflammatory bowel disease [Unknown]
  - Abdominal pain [Unknown]
  - Rectal haemorrhage [Unknown]
  - Thrombocytosis [Unknown]
  - Osteopenia [Unknown]
  - Colitis ulcerative [Unknown]
  - Hypersensitivity [Unknown]

NARRATIVE: CASE EVENT DATE: 1996
